FAERS Safety Report 7819478-6 (Version None)
Quarter: 2011Q4

REPORT INFORMATION
  Report Type: 
  Country: None (occurrence: None)
  Receive Date: 20111018
  Receipt Date: 20101026
  Transmission Date: 20120403
  Serious: No
  Sender: FDA-Public Use
  Company Number: US-ASTRAZENECA-2010SE50728

PATIENT
  Age: 63 Year
  Sex: Female
  Weight: 47.2 kg

DRUGS (5)
  1. LISINOPRIL [Concomitant]
  2. LOVASTATIN [Concomitant]
  3. SYMBICORT [Suspect]
     Dosage: 160/4.5 UG 2 PUFFS BID
     Route: 055
  4. ALBUTEROL [Concomitant]
  5. PROVENTIL [Concomitant]

REACTIONS (1)
  - DYSPNOEA [None]
